FAERS Safety Report 5663855-9 (Version None)
Quarter: 2008Q1

REPORT INFORMATION
  Report Type: 
  Country: None (occurrence: None)
  Receive Date: 20080311
  Receipt Date: 20080222
  Transmission Date: 20080703
  Serious: Yes (Other)
  Sender: FDA-Public Use
  Company Number: 2008US000652

PATIENT
  Age: 83 Year
  Sex: Female

DRUGS (13)
  1. AMBISOME [Suspect]
     Indication: MYELODYSPLASTIC SYNDROME
     Dosage: 2.5 MG/KG, UID/QD, IV NOS
     Route: 042
     Dates: start: 20080118, end: 20080128
  2. VANCOMYCIN HYDROCHLORIDE [Concomitant]
  3. NEUTROGIN (LENOGRASTIM) [Concomitant]
  4. MAGNESIUM OXIDE (MAGNESIUM OXIDE) [Concomitant]
  5. ASPIRIN [Concomitant]
  6. NITOROL (ISOSORBIDE DINITRAE) [Concomitant]
  7. METHYCOBAL (MECOBALAMIN) [Concomitant]
  8. PROTECADIN (LAFUTIDINE) [Concomitant]
  9. PRAVASTATIN [Concomitant]
  10. LENDORM [Concomitant]
  11. OPALMON (LIMAPROST) [Concomitant]
  12. LOXONIN (LOXOPROFEN SODIUM) [Concomitant]
  13. CLARITIN [Concomitant]

REACTIONS (1)
  - STEVENS-JOHNSON SYNDROME [None]
